FAERS Safety Report 8128400-7 (Version None)
Quarter: 2012Q1

REPORT INFORMATION
  Report Type: 
  Country: None (occurrence: None)
  Receive Date: 20120210
  Receipt Date: 20120206
  Transmission Date: 20120608
  Serious: Yes (Other)
  Sender: FDA-Public Use
  Company Number: US-PFIZER INC-2011203840

PATIENT
  Sex: Male

DRUGS (1)
  1. SERTRALINE HYDROCHLORIDE [Suspect]
     Dosage: 25 MG, 1X/DAY, FOR OVER 1 YEAR

REACTIONS (7)
  - PALPITATIONS [None]
  - ARRHYTHMIA [None]
  - DYSPNOEA [None]
  - TACHYCARDIA [None]
  - PANIC DISORDER [None]
  - FATIGUE [None]
  - DIZZINESS [None]
